FAERS Safety Report 6422137-8 (Version None)
Quarter: 2009Q4

REPORT INFORMATION
  Report Type: 
  Country: None (occurrence: None)
  Receive Date: 20091030
  Receipt Date: 20091023
  Transmission Date: 20100525
  Serious: Yes (Other)
  Sender: FDA-Public Use
  Company Number: AU-B.I. PHARMACEUTICALS,INC./RIDGEFIELD-2009-BP-12549YA

PATIENT
  Sex: Male

DRUGS (6)
  1. TAMSULOSIN HCL [Suspect]
  2. OXYCONTIN [Concomitant]
  3. DBL ASPIRIN [Concomitant]
  4. ATENOLOL [Concomitant]
  5. PRAVACHOL [Concomitant]
  6. RENITEC [Concomitant]

REACTIONS (1)
  - GLAUCOMA [None]
